FAERS Safety Report 23344932 (Version 3)
Quarter: 2025Q3

REPORT INFORMATION
  Report Type: Report from Study
  Country: AR (occurrence: AR)
  Receive Date: 20231228
  Receipt Date: 20250711
  Transmission Date: 20251021
  Serious: Yes (Other)
  Sender: GLAXOSMITHKLINE
  Company Number: AR-GLAXOSMITHKLINE-AR2023AMR179660

PATIENT
  Age: 79 Year
  Sex: Female

DRUGS (2)
  1. BELIMUMAB [Suspect]
     Active Substance: BELIMUMAB
     Indication: Systemic lupus erythematosus
  2. BELIMUMAB [Suspect]
     Active Substance: BELIMUMAB

REACTIONS (6)
  - Neurogenic shock [Unknown]
  - Spinal fracture [Not Recovered/Not Resolved]
  - Immobile [Recovering/Resolving]
  - Spinal disorder [Not Recovered/Not Resolved]
  - Gait disturbance [Recovering/Resolving]
  - Bedridden [Recovering/Resolving]

NARRATIVE: CASE EVENT DATE: 20230801
